FAERS Safety Report 4343485-1 (Version None)
Quarter: 2004Q2

REPORT INFORMATION
  Report Type: 
  Country: None (occurrence: None)
  Receive Date: 20040419
  Receipt Date: 20040311
  Transmission Date: 20050107
  Serious: Yes (Death, Other)
  Sender: FDA-Public Use
  Company Number: A-US2004-04957

PATIENT
  Age: 45 Year
  Sex: Female

DRUGS (13)
  1. TRACLEER [Suspect]
     Indication: PULMONARY HYPERTENSION
     Dosage: 62.5 MG. BID, ORAL
     Route: 048
     Dates: start: 20020206, end: 20020221
  2. LASIX [Concomitant]
  3. FLOLAN [Concomitant]
  4. COUMADIN [Concomitant]
  5. K-DUR 10 [Concomitant]
  6. ALLEGRA [Concomitant]
  7. LACTATE [Concomitant]
  8. ZYRTEC (CETIRIZINWE HYDROCHLORIDE) [Concomitant]
  9. DURAGESIC [Concomitant]
  10. FLONASE [Concomitant]
  11. PEPCID [Concomitant]
  12. FERROUS SULFATE TAB [Concomitant]
  13. LANOXIN [Concomitant]

REACTIONS (4)
  - ALANINE AMINOTRANSFERASE INCREASED [None]
  - ASPARTATE AMINOTRANSFERASE INCREASED [None]
  - DISEASE PROGRESSION [None]
  - PULMONARY HYPERTENSION [None]
